FAERS Safety Report 4692504-1 (Version None)
Quarter: 2005Q2

REPORT INFORMATION
  Report Type: 
  Country: None (occurrence: None)
  Receive Date: 20050613
  Receipt Date: 20050215
  Transmission Date: 20051028
  Serious: No
  Sender: FDA-Public Use
  Company Number: 2005-00267

PATIENT
  Age: 57 Year
  Sex: Female
  Weight: 43.5 kg

DRUGS (6)
  1. VELCADE [Suspect]
     Indication: MULTIPLE MYELOMA
     Dates: end: 20050210
  2. DEXAMETHASONE [Concomitant]
  3. VALTREX [Concomitant]
  4. ANTIANAEMIC PREPARATIONS [Concomitant]
  5. OXYCONTIN [Concomitant]
  6. RESTORIL [Concomitant]

REACTIONS (2)
  - NEUROPATHY PERIPHERAL [None]
  - RASH [None]
